FAERS Safety Report 8738475 (Version 2)
Quarter: 2012Q4

REPORT INFORMATION
  Report Type: 
  Country: CA (occurrence: CA)
  Receive Date: 20120823
  Receipt Date: 20121011
  Transmission Date: 20130627
  Serious: Yes (Disabling, Other)
  Sender: FDA-Public Use
  Company Number: CA-BAYER-2012-086102

PATIENT
  Age: 50 Year
  Sex: Female

DRUGS (5)
  1. AVELOX [Suspect]
     Indication: PNEUMONIA
     Dosage: 400 mg, QD
     Route: 048
     Dates: start: 20100907, end: 20100910
  2. BIAXIN [Concomitant]
     Dosage: UNK
     Dates: start: 20100911
  3. ADVIL [Concomitant]
     Dosage: 200 mg, UNK
  4. ADVIL [Concomitant]
     Dosage: continued on and off
     Dates: start: 20100907
  5. ADVIL [Concomitant]
     Dosage: continued on and off
     Dates: end: 20110920

REACTIONS (10)
  - Arthralgia [Not Recovered/Not Resolved]
  - Dry mouth [Not Recovered/Not Resolved]
  - Gait disturbance [Not Recovered/Not Resolved]
  - Joint range of motion decreased [Not Recovered/Not Resolved]
  - Musculoskeletal pain [Not Recovered/Not Resolved]
  - Neck pain [Not Recovered/Not Resolved]
  - Periarthritis [Not Recovered/Not Resolved]
  - Sleep terror [Not Recovered/Not Resolved]
  - Tendonitis [Not Recovered/Not Resolved]
  - Aphonia [Not Recovered/Not Resolved]
